FAERS Safety Report 7487244-X (Version None)
Quarter: 2011Q2

REPORT INFORMATION
  Report Type: 
  Country: None (occurrence: None)
  Receive Date: 20110518
  Receipt Date: 20110504
  Transmission Date: 20111010
  Serious: Yes (Other)
  Sender: FDA-Public Use
  Company Number: US-JNJFOC-20110405041

PATIENT
  Sex: Female

DRUGS (2)
  1. PROZAC [Concomitant]
     Route: 065
  2. NUCYNTA [Suspect]
     Indication: PRODUCT USED FOR UNKNOWN INDICATION
     Route: 048
     Dates: start: 20110101, end: 20110101

REACTIONS (2)
  - SEROTONIN SYNDROME [None]
  - ANXIETY [None]
